FAERS Safety Report 7270818-9 (Version None)
Quarter: 2011Q1

REPORT INFORMATION
  Report Type: 
  Country: None (occurrence: None)
  Receive Date: 20110202
  Receipt Date: 20110124
  Transmission Date: 20110831
  Serious: Yes (Hospitalization)
  Sender: FDA-Public Use
  Company Number: US-ASTRAZENECA-2011SE04116

PATIENT
  Sex: Female
  Weight: 72.6 kg

DRUGS (3)
  1. BENICAR [Concomitant]
  2. NEXIUM [Concomitant]
  3. CRESTOR [Suspect]
     Route: 048
     Dates: end: 20101226

REACTIONS (8)
  - HEART RATE INCREASED [None]
  - APPARENT DEATH [None]
  - MYALGIA [None]
  - CONDITION AGGRAVATED [None]
  - DIARRHOEA [None]
  - APHAGIA [None]
  - ATRIAL FIBRILLATION [None]
  - DYSPHAGIA [None]
